FAERS Safety Report 7745138 (Version 8)
Quarter: 2018Q2

REPORT INFORMATION
  Report Type: Report from Study
  Country: JP (occurrence: JP)
  Receive Date: 20101231
  Receipt Date: 20180604
  Transmission Date: 20180711
  Serious: Yes (Hospitalization, Other)
  Sender: FDA-Public Use
  Company Number: PHHY2010JP87996

PATIENT
  Age: 57 Year
  Sex: Male
  Weight: 54 kg

DRUGS (16)
  1. MYSLEE [Concomitant]
     Active Substance: ZOLPIDEM TARTRATE
     Indication: INSOMNIA
     Dosage: 5 MG, QD
     Route: 048
  2. TASIGNA [Suspect]
     Active Substance: NILOTINIB
     Dosage: 400 MG, BID
     Route: 048
  3. TASIGNA [Suspect]
     Active Substance: NILOTINIB
     Indication: CHRONIC MYELOID LEUKAEMIA
     Dosage: 400 MG, BID
     Route: 048
     Dates: start: 20090622
  4. GLIVEC [Suspect]
     Active Substance: IMATINIB MESYLATE
     Indication: CHRONIC MYELOID LEUKAEMIA
     Dosage: 600 MG, QD
     Route: 048
     Dates: start: 200604, end: 20090621
  5. ETIZOLAM [Concomitant]
     Active Substance: ETIZOLAM
     Indication: INSOMNIA
     Dosage: 0.5 MG, QD
     Route: 048
  6. ALLORINE [Concomitant]
     Indication: PROPHYLAXIS
     Dosage: 100 MG, QD
     Route: 048
     Dates: start: 20090713, end: 20090921
  7. DASATINIB. [Suspect]
     Active Substance: DASATINIB
     Indication: CHRONIC MYELOID LEUKAEMIA
     Dosage: 100 MG, QD
     Route: 065
  8. DASATINIB. [Suspect]
     Active Substance: DASATINIB
     Route: 065
  9. BASEN [Concomitant]
     Active Substance: VOGLIBOSE
     Indication: DIABETES MELLITUS
     Dosage: 0.6 MG, QD
     Route: 048
  10. AMARYL [Concomitant]
     Active Substance: GLIMEPIRIDE
     Indication: DIABETES MELLITUS
     Dosage: 1 MG, QD
     Route: 048
     Dates: end: 20090914
  11. AMARYL [Concomitant]
     Active Substance: GLIMEPIRIDE
     Dosage: 2.5 MG, QD
     Route: 048
     Dates: start: 20090915, end: 20100601
  12. VOGLIBOSE [Concomitant]
     Active Substance: VOGLIBOSE
     Indication: DIABETES MELLITUS
     Dosage: 0.9 MG, QD
     Route: 048
     Dates: start: 20090912
  13. DASATINIB. [Suspect]
     Active Substance: DASATINIB
     Dosage: 70 MG, QD
     Route: 065
  14. TASIGNA [Suspect]
     Active Substance: NILOTINIB
     Dosage: 400 MG, BID
     Route: 048
  15. DASATINIB. [Suspect]
     Active Substance: DASATINIB
     Dosage: 50 MG, QD
     Route: 065
  16. AMARYL [Concomitant]
     Active Substance: GLIMEPIRIDE
     Dosage: 3 MG, QD
     Route: 048
     Dates: start: 20100602

REACTIONS (12)
  - Pancytopenia [Unknown]
  - Blood lactate dehydrogenase increased [Recovered/Resolved]
  - Pyrexia [Unknown]
  - Pleural effusion [Recovered/Resolved]
  - Hepatic steatosis [Not Recovered/Not Resolved]
  - Dyspnoea [Unknown]
  - Rash [Unknown]
  - Diabetes mellitus [Recovered/Resolved]
  - Blood potassium decreased [Recovered/Resolved]
  - Pruritus [Unknown]
  - Electrocardiogram QT prolonged [Recovered/Resolved]
  - Drug ineffective [Unknown]

NARRATIVE: CASE EVENT DATE: 20080823
